FAERS Safety Report 13775513 (Version 1)
Quarter: 2017Q3

REPORT INFORMATION
  Report Type: Spontaneous
  Country: US (occurrence: US)
  Receive Date: 20170720
  Receipt Date: 20170720
  Transmission Date: 20171127
  Serious: No
  Sender: FDA-Public Use
  Company Number: None

PATIENT
  Age: 57 Year
  Sex: Female

DRUGS (1)
  1. KISQALI [Suspect]
     Active Substance: RIBOCICLIB

REACTIONS (4)
  - Rash [None]
  - Glossodynia [None]
  - Stomatitis [None]
  - Neutropenia [None]

NARRATIVE: CASE EVENT DATE: 20170720
